FAERS Safety Report 4949726-1 (Version None)
Quarter: 2006Q1

REPORT INFORMATION
  Report Type: 
  Country: None (occurrence: None)
  Receive Date: 20060316
  Receipt Date: 20060307
  Transmission Date: 20060701
  Serious: Yes (Other)
  Sender: FDA-Public Use
  Company Number: B0415522A

PATIENT
  Age: 10 Year
  Sex: Female

DRUGS (1)
  1. DEXEDRINE [Suspect]

REACTIONS (5)
  - ANTINUCLEAR ANTIBODY POSITIVE [None]
  - CYANOSIS [None]
  - ERYTHEMA [None]
  - PAIN IN EXTREMITY [None]
  - PRURITUS [None]
